FAERS Safety Report 8775258 (Version 1)
Quarter: 2012Q4

REPORT INFORMATION
  Report Type: Report from Study
  Country: CA (occurrence: CA)
  Receive Date: 20120910
  Receipt Date: 20120910
  Transmission Date: 20130627
  Serious: Yes (Other)
  Sender: FDA-Public Use
  Company Number: CA-ROCHE-789854

PATIENT
  Sex: Female
  Weight: 77.18 kg

DRUGS (9)
  1. MABTHERA [Suspect]
     Indication: RHEUMATOID ARTHRITIS
     Dosage: FREQUENCY: DAY 1 + 15
     Route: 042
  2. MABTHERA [Suspect]
     Route: 042
  3. METHOTREXATE [Concomitant]
     Indication: RHEUMATOID ARTHRITIS
     Route: 048
  4. MEDROL [Concomitant]
     Route: 065
  5. CALCIUM [Concomitant]
     Dosage: 500 MG/400 IU
     Route: 048
  6. FOLIC ACID [Concomitant]
     Indication: RHEUMATOID ARTHRITIS
     Route: 048
  7. MICARDIS PLUS [Concomitant]
     Indication: HYPOTENSION
     Route: 048
  8. ESTRACE [Concomitant]
     Indication: MENOPAUSE
     Route: 048
  9. PROMETRIUM [Concomitant]
     Indication: MENOPAUSE
     Route: 048

REACTIONS (2)
  - Uterine polyp [Unknown]
  - Vaginal haemorrhage [Recovered/Resolved]
